FAERS Safety Report 8224032-0 (Version None)
Quarter: 2012Q1

REPORT INFORMATION
  Report Type: 
  Country: None (occurrence: None)
  Receive Date: 20120321
  Receipt Date: 20120313
  Transmission Date: 20120608
  Serious: Yes (Other)
  Sender: FDA-Public Use
  Company Number: JP-B.I. PHARMACEUTICALS,INC./RIDGEFIELD-2012-BP-03407NB

PATIENT
  Sex: Male

DRUGS (5)
  1. PRADAXA [Suspect]
     Indication: ATRIAL FIBRILLATION
     Dosage: 220 MG
     Route: 048
     Dates: start: 20120125, end: 20120209
  2. TEGRETOL [Suspect]
     Indication: EPILEPSY
     Dosage: 200 MG
     Route: 048
     Dates: start: 20120125
  3. RABEPRAZOLE SODIUM [Concomitant]
     Indication: GASTRIC CANCER
     Dosage: 10 MG
     Route: 048
     Dates: start: 20120115
  4. PRADAXA [Suspect]
     Indication: EMBOLIC STROKE
  5. TEGRETOL [Suspect]
     Indication: PARTIAL SEIZURES
     Dosage: 100 MG
     Route: 048
     Dates: start: 20120128, end: 20120209

REACTIONS (6)
  - EPILEPSY [None]
  - SOMNOLENCE [None]
  - THROMBOCYTOPENIA [None]
  - PYREXIA [None]
  - URINARY TRACT INFECTION [None]
  - PARTIAL SEIZURES [None]
